FAERS Safety Report 13773078 (Version 1)
Quarter: 2017Q3

REPORT INFORMATION
  Report Type: Spontaneous
  Country: GB (occurrence: GB)
  Receive Date: 20170720
  Receipt Date: 20170720
  Transmission Date: 20171127
  Serious: Yes (Death, Other)
  Sender: FDA-Public Use
  Company Number: GB-PFIZER INC-1160557

PATIENT
  Age: 61 Year
  Sex: Male

DRUGS (7)
  1. SIMVASTATIN. [Concomitant]
     Active Substance: SIMVASTATIN
     Indication: HYPERCHOLESTEROLAEMIA
     Dosage: 40 MG DAILY, TAKEN AT NIGHT
     Route: 048
     Dates: start: 20111126, end: 20111208
  2. PYRIDOXINE [Concomitant]
     Active Substance: PYRIDOXINE
     Indication: DRUG TOXICITY PROPHYLAXIS
     Dosage: 50 MG, FREQ: 1 WEEK; INTERVAL: 1
     Route: 048
  3. RIFATER [Concomitant]
     Active Substance: ISONIAZID\PYRAZINAMIDE\RIFAMPIN
     Indication: TUBERCULOSIS
     Dosage: 5 KBQ, UNK
     Route: 048
  4. MEROPENEM. [Concomitant]
     Active Substance: MEROPENEM
     Indication: PRODUCT USED FOR UNKNOWN INDICATION
     Dosage: 1 GM, PROBABLE 3 TIMES DAILY
     Route: 040
  5. ETHAMBUTOL [Concomitant]
     Active Substance: ETHAMBUTOL HYDROCHLORIDE
     Indication: TUBERCULOSIS
     Dosage: 800 MG, UNK
     Route: 048
     Dates: start: 20111008, end: 20111024
  6. PHENYTOIN. [Suspect]
     Active Substance: PHENYTOIN
     Indication: SEIZURE
     Dosage: 300 MG, UNK
     Route: 048
     Dates: start: 20111206, end: 20111211
  7. PHENYTOIN. [Suspect]
     Active Substance: PHENYTOIN
     Indication: SEIZURE
     Dosage: 100 MG, FREQ: 1 DAY; INTERVAL: 3
     Route: 040
     Dates: start: 20111203, end: 20111205

REACTIONS (3)
  - Acute hepatic failure [Fatal]
  - Liver function test abnormal [Unknown]
  - Hepatic necrosis [Fatal]

NARRATIVE: CASE EVENT DATE: 20111207
